FAERS Safety Report 16535502 (Version 1)
Quarter: 2019Q3

REPORT INFORMATION
  Report Type: Spontaneous
  Country: US (occurrence: US)
  Receive Date: 20190705
  Receipt Date: 20190705
  Transmission Date: 20191004
  Serious: No
  Sender: FDA-Public Use
  Company Number: US-TEVA-2019-US-1067240

PATIENT
  Sex: Female

DRUGS (2)
  1. PRAVASTATIN SODIUM TABLETS USP [Suspect]
     Active Substance: PRAVASTATIN SODIUM
     Indication: BLOOD CHOLESTEROL INCREASED
     Route: 065
     Dates: start: 20190614
  2. PRAVASTATIN SODIUM TABLETS USP [Suspect]
     Active Substance: PRAVASTATIN SODIUM
     Dates: start: 2018

REACTIONS (3)
  - Headache [Unknown]
  - Gastrointestinal disorder [Unknown]
  - Diarrhoea [Unknown]

NARRATIVE: CASE EVENT DATE: 20190614
